FAERS Safety Report 10078646 (Version 2)
Quarter: 2014Q2

REPORT INFORMATION
  Report Type: Spontaneous
  Country: US (occurrence: None)
  Receive Date: 20140411
  Receipt Date: 20140425
  Transmission Date: 20141212
  Serious: Yes (Other)
  Sender: FDA-Public Use
  Company Number: 2014-US-004051

PATIENT
  Age: 59 Year
  Sex: Female
  Weight: 94.8 kg

DRUGS (9)
  1. XYREM [Suspect]
     Indication: NARCOLEPSY
     Route: 048
     Dates: start: 201403, end: 201403
  2. XYREM [Suspect]
     Indication: SOMNOLENCE
     Route: 048
     Dates: start: 201403, end: 201403
  3. NEXIUM (ESOMEPRAZOLE MAGNESIUM) [Concomitant]
  4. LEXAPRO (ESCITALOPRAM OXALATE) [Concomitant]
  5. WELLBUTRIN (BUPROPION HYDROCHLORIDE) [Concomitant]
  6. STATIN (NYSTATIN) [Concomitant]
  7. HYDROCHLOROTHIAZIDE (HYDROCHLOROTHIAZIDE) [Concomitant]
  8. LISINOPRIL (LISINOPRIL) [Concomitant]
  9. VIVELLE (ESTRADIOL) [Concomitant]

REACTIONS (12)
  - Pharyngeal oedema [None]
  - Pharyngeal oedema [None]
  - Speech disorder [None]
  - Gait disturbance [None]
  - Aggression [None]
  - Agitation [None]
  - Hyperhidrosis [None]
  - Nausea [None]
  - Nervousness [None]
  - Somnolence [None]
  - Swollen tongue [None]
  - Insomnia [None]
